FAERS Safety Report 22393998 (Version 1)
Quarter: 2023Q2

REPORT INFORMATION
  Report Type: Spontaneous
  Country: US (occurrence: US)
  Receive Date: 20230601
  Receipt Date: 20230601
  Transmission Date: 20230721
  Serious: No
  Sender: FDA-Public Use
  Company Number: US-APIL-2315327US

PATIENT
  Sex: Female

DRUGS (2)
  1. DALVANCE [Suspect]
     Active Substance: DALBAVANCIN
     Indication: Product used for unknown indication
     Dosage: UNK, SINGLE
     Route: 041
  2. DALVANCE [Suspect]
     Active Substance: DALBAVANCIN
     Dosage: UNK, SINGLE
     Route: 041

REACTIONS (1)
  - Rash [Recovered/Resolved]
